FAERS Safety Report 7331710-4 (Version None)
Quarter: 2011Q1

REPORT INFORMATION
  Report Type: 
  Country: None (occurrence: None)
  Receive Date: 20110304
  Receipt Date: 20110221
  Transmission Date: 20110831
  Serious: Yes (Other)
  Sender: FDA-Public Use
  Company Number: PHFR2011GB01158

PATIENT
  Sex: Male
  Weight: 62.7 kg

DRUGS (3)
  1. CLOZARIL [Suspect]
     Indication: SCHIZOPHRENIA
     Dosage: UNK
     Route: 048
     Dates: start: 20060717
  2. CLOZARIL [Suspect]
     Dosage: 300 MG, UNK
     Route: 048
     Dates: start: 20080801
  3. PIRENZEPINE [Concomitant]
     Dosage: UNK

REACTIONS (2)
  - CHEST PAIN [None]
  - TACHYCARDIA [None]
